FAERS Safety Report 9099480 (Version 5)
Quarter: 2013Q3

REPORT INFORMATION
  Report Type: Report from Study
  Country: GB (occurrence: GB)
  Receive Date: 20130214
  Receipt Date: 20130911
  Transmission Date: 20140515
  Serious: Yes (Hospitalization)
  Sender: FDA-Public Use
  Company Number: GB-ROCHE-1177209

PATIENT
  Age: 63 Year
  Sex: Male
  Weight: 85.7 kg

DRUGS (7)
  1. RHUPH20/RITUXIMAB [Suspect]
     Indication: B-CELL LYMPHOMA
     Dosage: DATE OF LAST DOSE PRIOR TO SAE WAS ON 31/DEC/2012
     Route: 058
     Dates: start: 20121231
  2. RITUXIMAB [Suspect]
     Indication: B-CELL LYMPHOMA
     Route: 042
     Dates: start: 20121031
  3. RITUXIMAB [Suspect]
     Route: 042
     Dates: start: 20121128
  4. LACTULOSE [Concomitant]
     Indication: CONSTIPATION
     Route: 065
     Dates: start: 20130104, end: 20130106
  5. LACTULOSE [Concomitant]
     Route: 065
     Dates: start: 20121130, end: 20121130
  6. PIRITON [Concomitant]
     Route: 065
     Dates: start: 20121130, end: 20121130
  7. HYDROCORTISONE [Concomitant]
     Route: 065
     Dates: start: 20121130, end: 20121130

REACTIONS (1)
  - Injection site haematoma [Recovered/Resolved with Sequelae]
